FAERS Safety Report 4698384-2 (Version None)
Quarter: 2005Q2

REPORT INFORMATION
  Report Type: 
  Country: None (occurrence: None)
  Receive Date: 20050621
  Receipt Date: 20050609
  Transmission Date: 20051028
  Serious: Yes (Hospitalization)
  Sender: FDA-Public Use
  Company Number: 200510405BFR

PATIENT
  Age: 54 Year
  Sex: Male

DRUGS (3)
  1. MOXIFLOXACIN HYDROCHLORIDE [Suspect]
     Indication: TONSILLITIS
     Dosage: 400 MG, TOTAL DAILY, ORAL
     Route: 048
     Dates: start: 20050507, end: 20050513
  2. CORTANCYL (PREDNISONE) [Suspect]
     Indication: TONSILLITIS
     Dosage: 20 MG, TOTAL DAILY, ORAL
     Route: 048
     Dates: start: 20050507, end: 20050513
  3. METHOTREXATE [Concomitant]

REACTIONS (7)
  - ACUTE GENERALISED EXANTHEMATOUS PUSTULOSIS [None]
  - ALANINE AMINOTRANSFERASE INCREASED [None]
  - ASPARTATE AMINOTRANSFERASE INCREASED [None]
  - ASTHENIA [None]
  - BLOOD BILIRUBIN INCREASED [None]
  - PYREXIA [None]
  - RENAL FAILURE [None]
